FAERS Safety Report 8396693-7 (Version None)
Quarter: 2012Q1

REPORT INFORMATION
  Report Type: 
  Country: None (occurrence: None)
  Receive Date: 20120323
  Receipt Date: 20110725
  Transmission Date: 20120608
  Serious: Yes (Other)
  Sender: FDA-Public Use
  Company Number: 163-21880-11071298

PATIENT
  Age: 57 Year
  Sex: Female
  Weight: 41.2773 kg

DRUGS (11)
  1. NEPHRO CAPS (NEPHROCAPS) [Concomitant]
  2. MEGESTROL ACETATE [Concomitant]
  3. VICODIN [Concomitant]
  4. DEXAMETHASONE [Concomitant]
  5. VELCADE [Concomitant]
  6. ATENOLOL [Concomitant]
  7. REVLIMID [Suspect]
     Indication: MULTIPLE MYELOMA
     Dosage: 5 MG, 1 IN 1 D, PO, 5 MG, M-W-F, PO
     Route: 048
     Dates: start: 20100417
  8. REVLIMID [Suspect]
     Indication: MULTIPLE MYELOMA
     Dosage: 5 MG, 1 IN 1 D, PO, 5 MG, M-W-F, PO
     Route: 048
     Dates: start: 20101001, end: 20101201
  9. FOSRENOL [Concomitant]
  10. VITAMIN D [Concomitant]
  11. ZOFRAN [Concomitant]

REACTIONS (2)
  - BONE MARROW FAILURE [None]
  - DRUG INEFFECTIVE [None]
